FAERS Safety Report 10384651 (Version 5)
Quarter: 2016Q3

REPORT INFORMATION
  Report Type: Report from Study
  Country: KR (occurrence: KR)
  Receive Date: 20140814
  Receipt Date: 20160711
  Transmission Date: 20161109
  Serious: Yes (Hospitalization, Other)
  Sender: FDA-Public Use
  Company Number: KR-OTSUKA-JP-2014-16603

PATIENT
  Age: 75 Year
  Sex: Female

DRUGS (18)
  1. FUROSEMIDE. [Concomitant]
     Active Substance: FUROSEMIDE
     Indication: CARDIAC FAILURE
     Dosage: 100 MG, QD
     Route: 042
     Dates: start: 20140803
  2. ALPRAZOLAM. [Concomitant]
     Active Substance: ALPRAZOLAM
     Indication: HYPONATRAEMIA
     Dosage: 0.25 MG, QD
     Route: 048
     Dates: start: 20140801, end: 20140803
  3. INSULIN GLARGINE [Concomitant]
     Active Substance: INSULIN GLARGINE
     Indication: DIABETES MELLITUS
     Dosage: 20 IU, QD
     Route: 058
     Dates: start: 20140802, end: 20140802
  4. CALCIUM GLUCONATE. [Concomitant]
     Active Substance: CALCIUM GLUCONATE
     Indication: HYPONATRAEMIA
     Dosage: 2 G, QD
     Route: 042
     Dates: start: 20140801
  5. FUROSEMIDE. [Concomitant]
     Active Substance: FUROSEMIDE
     Indication: HYPONATRAEMIA
     Dosage: 760 MG, QD
     Route: 042
     Dates: start: 20140802, end: 20140802
  6. CLOPIDOGREL [Concomitant]
     Active Substance: CLOPIDOGREL BISULFATE
     Indication: HYPONATRAEMIA
     Dosage: 75 MG, QD
     Route: 048
     Dates: start: 20140720
  7. BESZYME [Concomitant]
     Indication: PROPHYLAXIS
     Dosage: 3 DF, QD
     Route: 048
     Dates: start: 20140801, end: 20140804
  8. HEPARIN [Concomitant]
     Active Substance: HEPARIN SODIUM
     Indication: HYPONATRAEMIA
     Dosage: 25000 IU, QD
     Route: 042
     Dates: start: 20140801, end: 20140803
  9. TOLVAPTAN [Suspect]
     Active Substance: TOLVAPTAN
     Dosage: 30 MG, QD
     Route: 048
     Dates: start: 20140803, end: 20140804
  10. TAZOPERAN [Concomitant]
     Indication: HYPONATRAEMIA
     Dosage: 2.25 MG, QD
     Route: 042
     Dates: start: 20140802
  11. AMBROXOL [Concomitant]
     Active Substance: AMBROXOL
     Indication: HYPONATRAEMIA
     Dosage: 90 MG, QD
     Route: 048
     Dates: start: 20140728, end: 20140804
  12. ASPIRIN. [Concomitant]
     Active Substance: ASPIRIN
     Indication: HYPONATRAEMIA
     Dosage: 100 MG, QD
     Route: 048
     Dates: start: 20140720
  13. LANSOPRAZOLE. [Concomitant]
     Active Substance: LANSOPRAZOLE
     Indication: PROPHYLAXIS
     Dosage: 30 MG, QD
     Route: 048
     Dates: start: 20140801, end: 20140804
  14. INSULIN GLARGINE [Concomitant]
     Active Substance: INSULIN GLARGINE
     Indication: HYPONATRAEMIA
     Dosage: 14 IU, QD
     Route: 058
     Dates: start: 20140801, end: 20140803
  15. TOLVAPTAN [Suspect]
     Active Substance: TOLVAPTAN
     Indication: HYPONATRAEMIA
     Dosage: 15 MG, QD
     Route: 048
     Dates: start: 20140802, end: 20140802
  16. ATORVASTATIN [Concomitant]
     Active Substance: ATORVASTATIN
     Indication: HYPONATRAEMIA
     Dosage: 40 MG, QD
     Route: 048
     Dates: start: 20140720
  17. INSULIN GLARGINE [Concomitant]
     Active Substance: INSULIN GLARGINE
     Dosage: 28 IU, QD
     Route: 058
     Dates: start: 20140803
  18. ALBUMIN [Concomitant]
     Active Substance: ALBUMIN HUMAN
     Indication: HYPONATRAEMIA
     Dosage: 100 ML, QD
     Route: 042
     Dates: start: 20140802, end: 20140802

REACTIONS (3)
  - Hyperglycaemia [Recovered/Resolved]
  - Pulmonary oedema [Recovered/Resolved]
  - Blood urea increased [Recovered/Resolved]

NARRATIVE: CASE EVENT DATE: 20140803
